FAERS Safety Report 23545999 (Version 5)
Quarter: 2024Q3

REPORT INFORMATION
  Report Type: Spontaneous
  Country: US (occurrence: US)
  Receive Date: 20240220
  Receipt Date: 20240731
  Transmission Date: 20241017
  Serious: Yes (Other)
  Sender: CSL BEHRING
  Company Number: US-BEH-2024168579

PATIENT
  Age: 60 Year
  Sex: Female

DRUGS (8)
  1. HIZENTRA [Suspect]
     Active Substance: HUMAN IMMUNOGLOBULIN G
     Indication: Hypogammaglobulinaemia
     Dosage: 8 GRAM, WEEKLY
     Route: 058
     Dates: start: 202208
  2. TAMIFLU [Suspect]
     Active Substance: OSELTAMIVIR PHOSPHATE
     Dosage: UNK
     Route: 065
  3. AUGMENTIN [Suspect]
     Active Substance: AMOXICILLIN\CLAVULANATE POTASSIUM
     Indication: Colitis
     Dosage: UNK
     Route: 065
  4. DUPIXENT [Suspect]
     Active Substance: DUPILUMAB
     Indication: Nasal polyps
     Dosage: 300 MG, QOW
     Route: 058
     Dates: start: 202101
  5. DUPIXENT [Suspect]
     Active Substance: DUPILUMAB
     Indication: Rhinitis allergic
  6. NUCALA [Concomitant]
     Active Substance: MEPOLIZUMAB
     Route: 065
  7. DUPIXENT [Concomitant]
     Active Substance: DUPILUMAB
     Indication: Nasal polyps
     Dosage: 300 MG, QOW
     Route: 058
     Dates: start: 202101
  8. DUPIXENT [Concomitant]
     Active Substance: DUPILUMAB
     Indication: Rhinitis allergic

REACTIONS (20)
  - Colitis [Unknown]
  - Clostridium difficile infection [Unknown]
  - Infection [Unknown]
  - Drug ineffective [Unknown]
  - Abdominal pain upper [Unknown]
  - Stent placement [Unknown]
  - Stomatitis [Unknown]
  - Malaise [Unknown]
  - Bedridden [Recovered/Resolved]
  - Abdominal pain [Unknown]
  - Dry mouth [Unknown]
  - Oral pain [Unknown]
  - Therapy change [Unknown]
  - Adverse drug reaction [Unknown]
  - Patient dissatisfaction with treatment [Unknown]
  - Gastrointestinal pain [Unknown]
  - Nausea [Unknown]
  - Headache [Unknown]
  - Diarrhoea [Unknown]
  - Product dose omission issue [Unknown]

NARRATIVE: CASE EVENT DATE: 20240101
